FAERS Safety Report 5358931-4 (Version None)
Quarter: 2007Q2

REPORT INFORMATION
  Report Type: 
  Country: None (occurrence: None)
  Receive Date: 20070615
  Receipt Date: 20070607
  Transmission Date: 20071010
  Serious: Yes (Other)
  Sender: FDA-Public Use
  Company Number: B0475107A

PATIENT
  Sex: Female

DRUGS (1)
  1. AROPAX [Suspect]
     Route: 048

REACTIONS (6)
  - ABDOMINAL PAIN UPPER [None]
  - ANXIETY [None]
  - DEPRESSED MOOD [None]
  - DRUG DEPENDENCE [None]
  - FEELING HOT AND COLD [None]
  - PAIN [None]
